FAERS Safety Report 9310882 (Version 1)
Quarter: 2013Q2

REPORT INFORMATION
  Report Type: Spontaneous
  Country: US (occurrence: None)
  Receive Date: 20130523
  Receipt Date: 20130523
  Transmission Date: 20140414
  Serious: Yes (Hospitalization)
  Sender: FDA-Public Use
  Company Number: None

PATIENT
  Age: 83 Year
  Sex: Male
  Weight: 81.8 kg

DRUGS (1)
  1. MELOXICAM [Suspect]
     Indication: PAIN
     Route: 048
     Dates: start: 20121029, end: 20130515

REACTIONS (3)
  - Gastrointestinal haemorrhage [None]
  - Gastric haemorrhage [None]
  - Peptic ulcer [None]
